FAERS Safety Report 14289501 (Version 8)
Quarter: 2020Q3

REPORT INFORMATION
  Report Type: Report from Study
  Country: US (occurrence: US)
  Receive Date: 20171214
  Receipt Date: 20200824
  Transmission Date: 20201102
  Serious: Yes (Hospitalization, Disabling, Other)
  Sender: FDA-Public Use
  Company Number: US-ACTELION-A-NJ2017-164095

PATIENT
  Age: 71 Year
  Sex: Female
  Weight: 51.25 kg

DRUGS (10)
  1. OFEV [Suspect]
     Active Substance: NINTEDANIB
     Indication: PRODUCT USED FOR UNKNOWN INDICATION
     Route: 065
  2. OPSUMIT [Suspect]
     Active Substance: MACITENTAN
     Indication: PULMONARY ARTERIAL HYPERTENSION
     Dosage: 10 MG, QD
     Route: 048
     Dates: start: 20160713
  3. AMLODIPINE [Concomitant]
     Active Substance: AMLODIPINE BESYLATE
  4. BACTRIM DS [Concomitant]
     Active Substance: SULFAMETHOXAZOLE\TRIMETHOPRIM
     Dosage: UNK
     Dates: start: 20170223
  5. DOXYCYCLINE. [Concomitant]
     Active Substance: DOXYCYCLINE
     Dosage: UNK
     Dates: start: 20170223
  6. OXYGEN. [Concomitant]
     Active Substance: OXYGEN
  7. OPSUMIT [Suspect]
     Active Substance: MACITENTAN
     Dosage: 10 MG, QD
     Route: 048
  8. MYCOPHENOLATE [Suspect]
     Active Substance: MYCOPHENOLIC ACID
     Indication: PRODUCT USED FOR UNKNOWN INDICATION
     Route: 065
  9. AUGMENTIN [Concomitant]
     Active Substance: AMOXICILLIN\CLAVULANATE POTASSIUM
     Dosage: UNK
     Dates: start: 20170223
  10. ADCIRCA [Concomitant]
     Active Substance: TADALAFIL

REACTIONS (18)
  - Pneumonia [Recovered/Resolved]
  - Palpitations [Unknown]
  - Ear disorder [Unknown]
  - Chest discomfort [Not Recovered/Not Resolved]
  - Upper respiratory tract infection [Recovered/Resolved with Sequelae]
  - Malaise [Unknown]
  - Abdominal discomfort [Unknown]
  - Oxygen consumption increased [Not Recovered/Not Resolved]
  - Nasopharyngitis [Unknown]
  - Gastrointestinal pain [Unknown]
  - Cough [Unknown]
  - Hypotension [Unknown]
  - Seasonal allergy [Unknown]
  - Pulmonary hypertension [Not Recovered/Not Resolved]
  - Pulmonary fibrosis [Unknown]
  - Eye laser surgery [Unknown]
  - Dyspnoea [Not Recovered/Not Resolved]
  - Hypoxia [Not Recovered/Not Resolved]

NARRATIVE: CASE EVENT DATE: 20170223
